FAERS Safety Report 8986224 (Version 2)
Quarter: 2012Q4

REPORT INFORMATION
  Report Type: 
  Country: DE (occurrence: DE)
  Receive Date: 20121227
  Receipt Date: 20121231
  Transmission Date: 20130627
  Serious: Yes (Other)
  Sender: FDA-Public Use
  Company Number: DE-009507513-1212DEU005856

PATIENT
  Sex: Female

DRUGS (3)
  1. IMPLANON [Suspect]
     Indication: CONTRACEPTION
     Dosage: UNK
     Route: 059
     Dates: start: 20121114, end: 20121203
  2. NALTREXONE [Concomitant]
     Indication: BORDERLINE PERSONALITY DISORDER
     Dosage: 50 mg, qd
  3. VENLAFAXINE HYDROCHLORIDE [Concomitant]
     Dosage: 150 mg, UNK

REACTIONS (4)
  - Conversion disorder [Recovered/Resolved]
  - Aggression [Recovered/Resolved]
  - Mood altered [Recovered/Resolved]
  - Depression [Recovered/Resolved]
